FAERS Safety Report 5203467-4 (Version None)
Quarter: 2007Q1

REPORT INFORMATION
  Report Type: 
  Country: None (occurrence: None)
  Receive Date: 20070110
  Receipt Date: 20061229
  Transmission Date: 20070707
  Serious: Yes (Other)
  Sender: FDA-Public Use
  Company Number: PHBS2006IN20107

PATIENT
  Sex: Male

DRUGS (4)
  1. SANDIMMUNE [Suspect]
     Indication: TRANSPLANT
     Dosage: 75 MG, BID
     Route: 048
  2. AZATHIOPRINE [Concomitant]
  3. STEROIDS NOS [Concomitant]
  4. AMLODIPINE [Concomitant]

REACTIONS (1)
  - ARTERIAL THROMBOSIS [None]
